FAERS Safety Report 9016972 (Version 1)
Quarter: 2013Q1

REPORT INFORMATION
  Report Type: Report from Study
  Country: BE (occurrence: BE)
  Receive Date: 20130117
  Receipt Date: 20130117
  Transmission Date: 20140127
  Serious: Yes (Death, Hospitalization)
  Sender: FDA-Public Use
  Company Number: BE-009507513-1301BEL004815

PATIENT
  Age: 51 Year
  Sex: Male
  Weight: 76.25 kg

DRUGS (15)
  1. MK-7365 [Suspect]
     Indication: GLIOBLASTOMA
     Dosage: 160 MG, QD
     Route: 048
     Dates: start: 20091215, end: 20100112
  2. MK-7365 [Suspect]
     Dosage: FORM GELUCES, QD
     Route: 048
     Dates: start: 20091215, end: 20100112
  3. BEVACIZUMAB [Suspect]
     Indication: GLIOBLASTOMA
     Dosage: 160 MG, QOW
     Route: 042
     Dates: start: 20091215, end: 20100120
  4. LEVETIRACETAM [Concomitant]
     Indication: PROPHYLAXIS
     Dosage: 1000 MG, UNK
     Route: 042
     Dates: start: 20091106, end: 20100120
  5. LEVETIRACETAM [Concomitant]
     Dosage: 1000 MG, UNK
     Route: 042
     Dates: start: 20091106, end: 20100120
  6. METHYLPREDNISOLONE [Concomitant]
     Dosage: UNK MG, UNK
     Route: 048
     Dates: start: 20091209, end: 20100111
  7. METHYLPREDNISOLONE [Concomitant]
     Dosage: 40 MG, UNK
     Route: 042
     Dates: start: 20100112, end: 20100120
  8. METHYLPREDNISOLONE [Concomitant]
     Dosage: UNK MG, UNK
     Route: 048
     Dates: start: 20091117, end: 20091208
  9. METHYLPREDNISOLONE [Concomitant]
     Dosage: UNK MG, UNK
     Route: 048
     Dates: start: 20091209, end: 20100111
  10. METHYLPREDNISOLONE [Concomitant]
     Dosage: UNK MG, UNK
     Route: 042
     Dates: start: 20100112, end: 20100120
  11. BISOPROLOL [Concomitant]
     Indication: PROPHYLAXIS
     Dosage: 5 MG, UNK
     Dates: start: 20091203, end: 20100120
  12. EXFORGE [Concomitant]
     Indication: PROPHYLAXIS
     Dosage: 10/160 MG, UNK
     Dates: start: 20091203, end: 20100112
  13. LORMETAZEPAM [Concomitant]
     Indication: PROPHYLAXIS
     Dosage: UNK MG, UNK
     Dates: start: 20091223, end: 20100111
  14. LORMETAZEPAM [Concomitant]
     Dosage: UNK
     Dates: start: 20091106, end: 20091106
  15. EUSAPRIM [Concomitant]
     Dosage: UNK MG, UNK
     Dates: start: 20100106, end: 20100112

REACTIONS (2)
  - Diverticulitis [Fatal]
  - Large intestine perforation [Fatal]
